FAERS Safety Report 4501943-0 (Version None)
Quarter: 2004Q4

REPORT INFORMATION
  Report Type: 
  Country: None (occurrence: None)
  Receive Date: 20041116
  Receipt Date: 19981015
  Transmission Date: 20050328
  Serious: Yes (Disabling)
  Sender: FDA-Public Use
  Company Number: DK-AMGEN-98100021

PATIENT
  Sex: Female

DRUGS (9)
  1. ETANERCEPT [Suspect]
     Indication: RHEUMATOID ARTHRITIS
     Route: 058
     Dates: start: 19980430, end: 19990111
  2. ETANERCEPT [Suspect]
  3. ESTROGEN NOS [Concomitant]
     Dates: start: 19920101
  4. LEVOTHYROXINE SODIUM [Concomitant]
     Dates: start: 19590101
  5. ACETAMINOPHEN [Concomitant]
     Dates: start: 19920101
  6. DOLOXENE [Concomitant]
     Dates: start: 19920101
  7. ATENOLOL [Concomitant]
     Dates: start: 19920101
  8. TRIAZOLAM [Concomitant]
     Dates: start: 19960101
  9. CITALOPRAM [Concomitant]
     Dates: start: 19960101

REACTIONS (2)
  - AMYOTROPHIC LATERAL SCLEROSIS [None]
  - CONDITION AGGRAVATED [None]
